FAERS Safety Report 16568602 (Version 2)
Quarter: 2019Q3

REPORT INFORMATION
  Report Type: Report from Study
  Country: None (occurrence: US)
  Receive Date: 20190712
  Receipt Date: 20190903
  Transmission Date: 20191004
  Serious: Yes (Hospitalization)
  Sender: FDA-Public Use
  Company Number: US-ABBVIE-19K-163-2850522-00

PATIENT
  Sex: Female

DRUGS (6)
  1. VENCLEXTA [Suspect]
     Active Substance: VENETOCLAX
     Route: 048
     Dates: start: 2019
  2. IMBRUVICA [Suspect]
     Active Substance: IBRUTINIB
     Route: 048
     Dates: start: 20190421, end: 2019
  3. RITUXAN [Concomitant]
     Active Substance: RITUXIMAB
     Indication: PRODUCT USED FOR UNKNOWN INDICATION
     Dates: start: 2019
  4. IMBRUVICA [Suspect]
     Active Substance: IBRUTINIB
     Indication: LYMPHOCYTIC LYMPHOMA
     Route: 048
     Dates: start: 20180530, end: 2018
  5. VENCLEXTA [Suspect]
     Active Substance: VENETOCLAX
     Indication: PRODUCT USED FOR UNKNOWN INDICATION
     Route: 048
  6. IMBRUVICA [Suspect]
     Active Substance: IBRUTINIB
     Indication: CHRONIC LYMPHOCYTIC LEUKAEMIA
     Route: 048
     Dates: start: 20180321, end: 20180529

REACTIONS (3)
  - White blood cell count decreased [Unknown]
  - Red blood cell count decreased [Unknown]
  - Neoplasm [Unknown]
